FAERS Safety Report 17814253 (Version 2)
Quarter: 2020Q2

REPORT INFORMATION
  Report Type: Spontaneous
  Country: AR (occurrence: AR)
  Receive Date: 20200521
  Receipt Date: 20200617
  Transmission Date: 20200714
  Serious: Yes (Hospitalization, Other)
  Sender: FDA-Public Use
  Company Number: AR-B.I. PHARMACEUTICALS,INC./RIDGEFIELD-2020-BI-025924

PATIENT
  Age: 52 Year
  Sex: Male

DRUGS (2)
  1. GILOTRIF [Suspect]
     Active Substance: AFATINIB
     Indication: INTRACRANIAL PRESSURE INCREASED
     Route: 048
     Dates: start: 201911
  2. GILOTRIF [Suspect]
     Active Substance: AFATINIB
     Indication: NEOPLASM MALIGNANT

REACTIONS (5)
  - Neurological symptom [Unknown]
  - Endocrine hypertension [Recovered/Resolved]
  - Dysarthria [Recovered/Resolved]
  - Headache [Recovered/Resolved]
  - Rash [Recovered/Resolved]

NARRATIVE: CASE EVENT DATE: 201912
